FAERS Safety Report 8842123 (Version 1)
Quarter: 2012Q4

REPORT INFORMATION
  Report Type: Spontaneous
  Country: US (occurrence: None)
  Receive Date: 20121015
  Receipt Date: 20121015
  Transmission Date: 20130627
  Serious: Yes (Hospitalization, Other)
  Sender: FDA-Public Use
  Company Number: None

PATIENT
  Sex: Female
  Weight: 104.33 kg

DRUGS (1)
  1. MIRENA [Suspect]

REACTIONS (2)
  - Medication error [None]
  - Device difficult to use [None]
